FAERS Safety Report 10393062 (Version 1)
Quarter: 2014Q3

REPORT INFORMATION
  Report Type: Spontaneous
  Country: AU (occurrence: None)
  Receive Date: 20140815
  Receipt Date: 20140815
  Transmission Date: 20150326
  Serious: Yes (Death)
  Sender: FDA-Public Use
  Company Number: 2014AU01130

PATIENT

DRUGS (2)
  1. EFAVIRENZ [Suspect]
     Active Substance: EFAVIRENZ
     Indication: HIV INFECTION
     Dosage: 400 MG, ( AS TWO 200 MG EFAVIRENZ PILLS PLUS ONE 200 MG MATCHED EFAVIRENZ PLACEBO PILL)
  2. TENOFOVIR/EMTRICITABINE [Suspect]
     Active Substance: EMTRICITABINE\TENOFOVIR
     Indication: HIV INFECTION

REACTIONS (1)
  - Non-Hodgkin^s lymphoma [None]
